FAERS Safety Report 13565246 (Version 1)
Quarter: 2017Q2

REPORT INFORMATION
  Report Type: Spontaneous
  Country: CA (occurrence: CA)
  Receive Date: 20170519
  Receipt Date: 20170519
  Transmission Date: 20170830
  Serious: Yes (Death)
  Sender: FDA-Public Use
  Company Number: CA-BAUSCH-BL-2017-012426

PATIENT
  Age: 58 Year
  Sex: Female
  Weight: 86 kg

DRUGS (3)
  1. ZAXINE (RIFAXIMIN) [Suspect]
     Active Substance: RIFAXIMIN
     Indication: ENCEPHALOPATHY
     Route: 048
     Dates: start: 201704
  2. LACTULOSE. [Concomitant]
     Active Substance: LACTULOSE
     Indication: PRODUCT USED FOR UNKNOWN INDICATION
  3. ZAXINE (RIFAXIMIN) [Suspect]
     Active Substance: RIFAXIMIN
     Dosage: TABLETS AS DISSOLVED INTO LIQUID FORM
     Route: 048
     Dates: start: 20170428

REACTIONS (3)
  - Wrong technique in product usage process [Unknown]
  - Product use complaint [Recovered/Resolved]
  - Death [Fatal]

NARRATIVE: CASE EVENT DATE: 201704
